FAERS Safety Report 9146922 (Version 2)
Quarter: 2013Q2

REPORT INFORMATION
  Report Type: Report from Study
  Country: JP (occurrence: JP)
  Receive Date: 20130307
  Receipt Date: 20130521
  Transmission Date: 20140414
  Serious: Yes (Death)
  Sender: FDA-Public Use
  Company Number: JP-ROCHE-1198090

PATIENT
  Sex: Male

DRUGS (5)
  1. METHOXY POLYETHYLENE GLYCOL-EPOETIN BETA [Suspect]
     Indication: NEPHROGENIC ANAEMIA
     Route: 042
     Dates: start: 20120814, end: 20121009
  2. METHOXY POLYETHYLENE GLYCOL-EPOETIN BETA [Suspect]
     Indication: NEPHROGENIC ANAEMIA
     Route: 042
     Dates: start: 20121113, end: 20121113
  3. MAINTATE [Concomitant]
     Route: 048
  4. DIART [Concomitant]
     Route: 048
  5. AMLODIN [Concomitant]
     Route: 048

REACTIONS (1)
  - Lung neoplasm malignant [Fatal]
